FAERS Safety Report 8812609 (Version 1)
Quarter: 2012Q4

REPORT INFORMATION
  Report Type: 
  Country: HU (occurrence: HU)
  Receive Date: 20120927
  Receipt Date: 20120927
  Transmission Date: 20130627
  Serious: Yes (Other)
  Sender: FDA-Public Use
  Company Number: HU-PFIZER INC-2011221070

PATIENT
  Age: 59 Year
  Sex: Male
  Weight: 62 kg

DRUGS (5)
  1. XALATAN [Suspect]
     Indication: GLAUCOMA
     Dosage: 1 Gtt, 1x/day
     Dates: start: 201107
  2. DOXIUM [Concomitant]
     Dosage: UNK
     Dates: start: 2000
  3. VITAMIN B6 [Concomitant]
     Dosage: UNK
  4. TRITACE [Concomitant]
     Dosage: UNK
     Dates: start: 2003
  5. DOXILEK [Concomitant]
     Dosage: started 10 years ago

REACTIONS (4)
  - Intraocular pressure test abnormal [Not Recovered/Not Resolved]
  - Headache [Recovering/Resolving]
  - Eye pain [Not Recovered/Not Resolved]
  - Malaise [Not Recovered/Not Resolved]
